FAERS Safety Report 9976220 (Version 1)
Quarter: 2014Q1

REPORT INFORMATION
  Report Type: Report from Study
  Country: US (occurrence: US)
  Receive Date: 20140306
  Receipt Date: 20140306
  Transmission Date: 20141002
  Serious: No
  Sender: FDA-Public Use
  Company Number: US-ABBVIE-13P-163-1165511-00

PATIENT
  Age: 54 Year
  Sex: Male

DRUGS (11)
  1. HUMIRA [Suspect]
     Indication: CROHN^S DISEASE
     Dosage: FOUR INJECTIONS
     Route: 058
     Dates: start: 20130915
  2. HUMIRA [Suspect]
     Dosage: TWO INJECTIONS
     Route: 058
     Dates: start: 20130929
  3. HUMIRA [Suspect]
     Route: 058
     Dates: start: 20131013
  4. PROGRAF [Concomitant]
     Indication: PROPHYLAXIS
  5. CLONIDINE [Concomitant]
     Indication: HYPERTENSION
     Dosage: 0.2MG EVERY DAY
  6. LISINOPRIL [Concomitant]
     Indication: HYPERTENSION
     Dosage: 10MG EVERYDAY
  7. PREDNISONE [Concomitant]
     Indication: CROHN^S DISEASE
     Dosage: 5MG EVERYDAY
  8. CELLCEPT [Concomitant]
     Indication: PROPHYLAXIS
  9. SODIUM BICARBONATE [Concomitant]
     Indication: RENAL TRANSPLANT
     Dosage: THREE PILLS
  10. PHOSLO [Concomitant]
     Indication: RENAL TRANSPLANT
     Dosage: TWO PILLS
  11. MAGNESIUM OXIDE [Concomitant]
     Indication: CROHN^S DISEASE
     Dosage: 400 MG EVERY DAY

REACTIONS (1)
  - Injection site pain [Recovered/Resolved]
